FAERS Safety Report 5140606-8 (Version None)
Quarter: 2006Q4

REPORT INFORMATION
  Report Type: 
  Country: None (occurrence: None)
  Receive Date: 20061024
  Receipt Date: 20061011
  Transmission Date: 20070319
  Serious: Yes (Death)
  Sender: FDA-Public Use
  Company Number: DK200610002001

PATIENT
  Age: 71 Year
  Sex: Female
  Weight: 38.8 kg

DRUGS (2)
  1. TERIPARATIDE (TERIPARATIDE ) PEN, DISPOSABLE [Suspect]
     Indication: OSTEOPOROSIS
     Dosage: 20 UG, DAILY (1/D), SUBCUTANEOUS
     Route: 058
     Dates: start: 20050513, end: 20060824
  2. FORTEO [Concomitant]

REACTIONS (2)
  - HYPERCALCAEMIA [None]
  - PNEUMONIA [None]
